FAERS Safety Report 7238644-4 (Version None)
Quarter: 2011Q1

REPORT INFORMATION
  Report Type: 
  Country: None (occurrence: None)
  Receive Date: 20110121
  Receipt Date: 20110113
  Transmission Date: 20110831
  Serious: No
  Sender: FDA-Public Use
  Company Number: US-B.I. PHARMACEUTICALS,INC./RIDGEFIELD-2010-BP-15111BP

PATIENT
  Sex: Male

DRUGS (8)
  1. COUMADIN [Concomitant]
     Indication: ATRIAL FIBRILLATION
  2. PRADAXA [Suspect]
     Indication: ATRIAL FIBRILLATION
     Dosage: 300 MG
     Route: 048
     Dates: start: 20101206
  3. VERAPAMIL [Concomitant]
     Indication: ATRIAL FIBRILLATION
  4. RYTHMOL [Concomitant]
     Indication: ATRIAL FIBRILLATION
  5. AMBIEN ER [Concomitant]
     Indication: SLEEP DISORDER
  6. SKELAXIN [Concomitant]
     Indication: NERVE INJURY
  7. LYRICA [Concomitant]
     Indication: PAIN
  8. OMEPRAZOLE [Concomitant]
     Indication: GASTROOESOPHAGEAL REFLUX DISEASE

REACTIONS (4)
  - FATIGUE [None]
  - DYSPEPSIA [None]
  - INSOMNIA [None]
  - NAUSEA [None]
